FAERS Safety Report 22175673 (Version 1)
Quarter: 2023Q2

REPORT INFORMATION
  Report Type: Spontaneous
  Country: CN (occurrence: CN)
  Receive Date: 20230405
  Receipt Date: 20230405
  Transmission Date: 20230722
  Serious: Yes (Other)
  Sender: FDA-Public Use
  Company Number: CN-GLAXOSMITHKLINE-CN2023APC047458

PATIENT

DRUGS (3)
  1. LAMOTRIGINE [Suspect]
     Active Substance: LAMOTRIGINE
     Indication: Affective disorder
     Dosage: 50 MG, QD
     Route: 048
     Dates: start: 20230312, end: 20230323
  2. QUETIAPINE FUMARATE [Concomitant]
     Active Substance: QUETIAPINE FUMARATE
     Indication: Affective disorder
     Dosage: 25 MG, QD
     Route: 048
     Dates: start: 20230312, end: 20230323
  3. BUPROPION SUSTAINED RELEASE [Concomitant]
     Indication: Affective disorder
     Dosage: 0.15 MG, QD
     Route: 048
     Dates: start: 20230312, end: 20230323

REACTIONS (5)
  - Rash erythematous [Recovering/Resolving]
  - Rash [Recovering/Resolving]
  - Pruritus [Recovering/Resolving]
  - Poor quality sleep [Recovering/Resolving]
  - Condition aggravated [Recovering/Resolving]

NARRATIVE: CASE EVENT DATE: 20230323
